FAERS Safety Report 14789484 (Version 1)
Quarter: 2018Q2

REPORT INFORMATION
  Report Type: Spontaneous
  Country: US (occurrence: US)
  Receive Date: 20180423
  Receipt Date: 20180423
  Transmission Date: 20180711
  Serious: No
  Sender: FDA-Public Use
  Company Number: US-TEVA-764734ACC

PATIENT
  Sex: Female

DRUGS (2)
  1. ACICLOVIR [Suspect]
     Active Substance: ACYCLOVIR
     Route: 065
  2. FAMCICLOVIR. [Suspect]
     Active Substance: FAMCICLOVIR
     Dosage: 500 MILLIGRAM DAILY;
     Dates: start: 2010

REACTIONS (2)
  - Drug ineffective [Unknown]
  - Viral infection [Unknown]
